FAERS Safety Report 6523881-4 (Version None)
Quarter: 2009Q4

REPORT INFORMATION
  Report Type: 
  Country: None (occurrence: None)
  Receive Date: 20091231
  Receipt Date: 20091228
  Transmission Date: 20100525
  Serious: Yes (Life-Threatening)
  Sender: FDA-Public Use
  Company Number: FR-ASTRAZENECA-2009SE33634

PATIENT
  Age: 485 Month
  Sex: Female

DRUGS (5)
  1. NOLVADEX [Suspect]
     Indication: BREAST CANCER STAGE II
     Route: 048
     Dates: start: 20080314
  2. FARMORUBICIN [Suspect]
     Indication: BREAST CANCER STAGE II
     Route: 042
     Dates: start: 20070601, end: 20070701
  3. ENDOXAN [Suspect]
     Indication: BREAST CANCER STAGE II
     Route: 042
     Dates: start: 20090601, end: 20090701
  4. FLUOROURACIL [Suspect]
     Indication: BREAST CANCER STAGE II
     Route: 042
     Dates: start: 20070601, end: 20070701
  5. TAXOTERE [Suspect]
     Indication: BREAST CANCER STAGE II
     Route: 042
     Dates: start: 20070801, end: 20070901

REACTIONS (1)
  - ACUTE MYELOID LEUKAEMIA [None]
